FAERS Safety Report 12287126 (Version 2)
Quarter: 2016Q2

REPORT INFORMATION
  Report Type: Spontaneous
  Country: US (occurrence: US)
  Receive Date: 20160420
  Receipt Date: 20160426
  Transmission Date: 20160815
  Serious: No
  Sender: FDA-Public Use
  Company Number: US-JNJFOC-20160314964

PATIENT
  Age: 71 Year
  Sex: Female
  Weight: 61.24 kg

DRUGS (7)
  1. NASONEX [Concomitant]
     Active Substance: MOMETASONE FUROATE
     Indication: ASTHMA
     Route: 065
  2. GLYCERYL TRINITRATE [Concomitant]
     Active Substance: NITROGLYCERIN
     Indication: ANGINA PECTORIS
     Route: 065
  3. COMBIVENT [Concomitant]
     Active Substance: ALBUTEROL SULFATE\IPRATROPIUM BROMIDE
     Indication: ASTHMA
     Route: 065
  4. AXERT [Suspect]
     Active Substance: ALMOTRIPTAN MALATE
     Indication: MIGRAINE
     Route: 048
  5. AXERT [Suspect]
     Active Substance: ALMOTRIPTAN MALATE
     Indication: MIGRAINE
     Route: 048
     Dates: start: 2006
  6. SYMBICORT [Concomitant]
     Active Substance: BUDESONIDE\FORMOTEROL FUMARATE DIHYDRATE
     Indication: ASTHMA
     Route: 065
  7. NASONEX [Concomitant]
     Active Substance: MOMETASONE FUROATE
     Indication: HYPERSENSITIVITY
     Route: 065

REACTIONS (16)
  - Head injury [Unknown]
  - Migraine [Unknown]
  - Bed rest [Recovered/Resolved]
  - Pain [Unknown]
  - Irritability [Recovered/Resolved]
  - Abdominal discomfort [Recovered/Resolved]
  - Brain contusion [Unknown]
  - Road traffic accident [Unknown]
  - Malaise [Unknown]
  - Drug dose omission [Unknown]
  - Fall [Recovered/Resolved]
  - Nausea [Unknown]
  - Dizziness [Unknown]
  - Adverse event [Unknown]
  - Amnesia [Unknown]
  - Product distribution issue [Unknown]

NARRATIVE: CASE EVENT DATE: 201510
